FAERS Safety Report 24715127 (Version 2)
Quarter: 2024Q4

REPORT INFORMATION
  Report Type: Spontaneous
  Country: US (occurrence: US)
  Receive Date: 20241210
  Receipt Date: 20241211
  Transmission Date: 20250115
  Serious: No
  Sender: BIOGEN
  Company Number: US-BIOGEN-2024BI01293212

PATIENT
  Sex: Male

DRUGS (3)
  1. VUMERITY [Suspect]
     Active Substance: DIROXIMEL FUMARATE
     Indication: Multiple sclerosis
     Route: 050
     Dates: start: 20231004
  2. VITAMIN D [Concomitant]
     Active Substance: VITAMIN D NOS
     Route: 050
  3. FISH OIL [Concomitant]
     Active Substance: FISH OIL
     Route: 050

REACTIONS (2)
  - Product dose omission issue [Unknown]
  - Dizziness [Unknown]
